FAERS Safety Report 6477453-0 (Version None)
Quarter: 2009Q4

REPORT INFORMATION
  Report Type: 
  Country: None (occurrence: None)
  Receive Date: 20091207
  Receipt Date: 20091104
  Transmission Date: 20100525
  Serious: Yes (Hospitalization)
  Sender: FDA-Public Use
  Company Number: US-SANOFI-AVENTIS-2009SA001289

PATIENT
  Age: 75 Year
  Sex: Male
  Weight: 87.26 kg

DRUGS (7)
  1. ZOLPIDEM [Suspect]
     Indication: INSOMNIA
     Route: 048
     Dates: start: 20081124, end: 20081130
  2. PLACEBO [Suspect]
     Indication: INSOMNIA
     Route: 048
     Dates: start: 20081110, end: 20081130
  3. AMLODIPINE [Concomitant]
  4. BENAZEPRIL HYDROCHLORIDE [Concomitant]
  5. EZETIMIBE [Concomitant]
  6. DIOVAN HCT [Concomitant]
  7. SIMVASTATIN [Concomitant]

REACTIONS (1)
  - ATRIAL FIBRILLATION [None]
